FAERS Safety Report 20096448 (Version 2)
Quarter: 2022Q1

REPORT INFORMATION
  Report Type: Spontaneous
  Country: CA (occurrence: CA)
  Receive Date: 20211122
  Receipt Date: 20220124
  Transmission Date: 20220424
  Serious: Yes (Other)
  Sender: FDA-Public Use
  Company Number: CA-PFIZER INC-202101547344

PATIENT
  Age: 58 Year
  Sex: Male

DRUGS (5)
  1. SOMAVERT [Suspect]
     Active Substance: PEGVISOMANT
     Indication: Acromegaly
     Dosage: 30 MG, WEEKLY
     Route: 058
     Dates: start: 20130605
  2. SOMAVERT [Suspect]
     Active Substance: PEGVISOMANT
     Dosage: 20 MG, WEEKLY
     Route: 058
     Dates: end: 2018
  3. SOMAVERT [Suspect]
     Active Substance: PEGVISOMANT
     Dosage: 30 MG, WEEKLY
     Route: 058
     Dates: start: 20181109
  4. SOMAVERT [Suspect]
     Active Substance: PEGVISOMANT
     Dosage: 20 MG, 2X/WEEK
     Route: 058
  5. DOSTINEX [Concomitant]
     Active Substance: CABERGOLINE
     Dosage: UNK

REACTIONS (4)
  - Urinary bladder polyp [Unknown]
  - Cataract [Unknown]
  - Abdominal pain [Not Recovered/Not Resolved]
  - Off label use [Unknown]

NARRATIVE: CASE EVENT DATE: 20130605
